FAERS Safety Report 14372615 (Version 15)
Quarter: 2024Q4

REPORT INFORMATION
  Report Type: Spontaneous
  Country: HU (occurrence: HU)
  Receive Date: 20180110
  Receipt Date: 20241104
  Transmission Date: 20250114
  Serious: Yes (Life-Threatening, Other)
  Sender: PFIZER
  Company Number: HU-002147023-PHHY2017HU175233

PATIENT
  Age: 49 Year
  Sex: Female

DRUGS (18)
  1. PALBOCICLIB [Suspect]
     Active Substance: PALBOCICLIB
     Dosage: 100 MG, UNK
     Route: 065
     Dates: start: 20170926
  2. PALBOCICLIB [Suspect]
     Active Substance: PALBOCICLIB
     Dosage: 125 MG, UNK
     Route: 065
     Dates: start: 20170711, end: 20170725
  3. PALBOCICLIB [Suspect]
     Active Substance: PALBOCICLIB
     Dosage: 100 MG, UNK
     Route: 065
     Dates: start: 20170811
  4. PALBOCICLIB [Suspect]
     Active Substance: PALBOCICLIB
     Dosage: 100 MG, UNK
     Route: 065
     Dates: start: 20171031
  5. PALBOCICLIB [Suspect]
     Active Substance: PALBOCICLIB
     Dosage: UNK
  6. FILGRASTIM [Suspect]
     Active Substance: FILGRASTIM
     Dosage: UNK
     Route: 065
  7. CAPECITABINE [Suspect]
     Active Substance: CAPECITABINE
     Dosage: UNK
     Route: 065
     Dates: start: 201510, end: 201703
  8. FULVESTRANT [Suspect]
     Active Substance: FULVESTRANT
     Dosage: UNK
     Route: 065
     Dates: start: 20170711
  9. GONADORELIN [Suspect]
     Active Substance: GONADORELIN
     Dosage: UNK
     Route: 065
     Dates: start: 20170711
  10. DENOSUMAB [Suspect]
     Active Substance: DENOSUMAB
     Dosage: UNK
     Route: 065
     Dates: start: 201510, end: 201703
  11. GONADORELIN [Suspect]
     Active Substance: GONADORELIN
     Dosage: UNK
     Route: 065
     Dates: start: 20170711
  12. GONADORELIN [Suspect]
     Active Substance: GONADORELIN
     Dosage: 125 MG
     Route: 065
     Dates: start: 20170711, end: 20170725
  13. GONADORELIN [Suspect]
     Active Substance: GONADORELIN
     Dosage: 100 MG
     Route: 065
     Dates: start: 20171031
  14. GONADORELIN [Suspect]
     Active Substance: GONADORELIN
     Dosage: UNK
     Route: 065
  15. GONADORELIN [Suspect]
     Active Substance: GONADORELIN
     Dosage: UNK
     Route: 065
     Dates: start: 20170711
  16. GONADORELIN [Suspect]
     Active Substance: GONADORELIN
     Dosage: UNK
     Route: 065
     Dates: start: 20170711
  17. GONADORELIN [Suspect]
     Active Substance: GONADORELIN
     Dosage: UNK
     Route: 065
     Dates: start: 20170711
  18. LETROZOLE [Suspect]
     Active Substance: LETROZOLE
     Indication: Breast cancer
     Dosage: UNK
     Route: 065
     Dates: start: 201306, end: 201510

REACTIONS (9)
  - Neutropenia [Unknown]
  - Radiation fibrosis - lung [Unknown]
  - Uterine disorder [Unknown]
  - Ovarian disorder [Unknown]
  - White blood cell count decreased [Unknown]
  - Uterine enlargement [Unknown]
  - Platelet count decreased [Unknown]
  - Vaginal haemorrhage [Unknown]
  - Neoplasm progression [Unknown]

NARRATIVE: CASE EVENT DATE: 20140101
